FAERS Safety Report 12734061 (Version 3)
Quarter: 2016Q3

REPORT INFORMATION
  Report Type: Report from Study
  Country: AU (occurrence: AU)
  Receive Date: 20160912
  Receipt Date: 20160921
  Transmission Date: 20161109
  Serious: Yes (Hospitalization, Other)
  Sender: FDA-Public Use
  Company Number: PHHY2016AU092128

PATIENT
  Age: 39 Year
  Sex: Male

DRUGS (3)
  1. OLANZAPINE. [Suspect]
     Active Substance: OLANZAPINE
     Indication: PRODUCT USED FOR UNKNOWN INDICATION
     Dosage: 10 MG, TID
     Route: 048
  2. CLOZARIL [Suspect]
     Active Substance: CLOZAPINE
     Indication: SCHIZOPHRENIA
     Dosage: 350 MG, UNK
     Route: 048
     Dates: start: 20100122, end: 201603
  3. ZUCLOPENTHIXOL [Concomitant]
     Active Substance: ZUCLOPENTHIXOL
     Indication: PRODUCT USED FOR UNKNOWN INDICATION
     Dosage: 300 MG, DEPOT, 2 WEEKLY
     Route: 065

REACTIONS (14)
  - Schizophrenia [Unknown]
  - Myocarditis [Unknown]
  - Eosinophil count increased [Unknown]
  - Mental disorder [Unknown]
  - Delusion of grandeur [Not Recovered/Not Resolved]
  - Abnormal behaviour [Not Recovered/Not Resolved]
  - Thinking abnormal [Not Recovered/Not Resolved]
  - Tachycardia [Unknown]
  - Aggression [Unknown]
  - Left ventricular dysfunction [Unknown]
  - Cardiomyopathy [Unknown]
  - Cardiac disorder [Unknown]
  - Liver function test increased [Recovering/Resolving]
  - Sinus tachycardia [Unknown]

NARRATIVE: CASE EVENT DATE: 20160903
